FAERS Safety Report 7415431-5 (Version None)
Quarter: 2011Q2

REPORT INFORMATION
  Report Type: 
  Country: None (occurrence: None)
  Receive Date: 20110414
  Receipt Date: 20110412
  Transmission Date: 20111010
  Serious: Yes (Life-Threatening, Hospitalization)
  Sender: FDA-Public Use
  Company Number: DE-SANOFI-AVENTIS-2011SA022151

PATIENT
  Age: 69 Year
  Sex: Female

DRUGS (8)
  1. DOCETAXEL [Suspect]
     Dosage: VIA PORT
     Route: 041
     Dates: start: 20110406, end: 20110406
  2. CETUXIMAB [Suspect]
     Indication: METASTATIC GASTRIC CANCER
     Dosage: VIA PORT
     Route: 041
     Dates: start: 20101208, end: 20101208
  3. CETUXIMAB [Suspect]
     Dosage: VIA PORT
     Route: 041
     Dates: start: 20110406, end: 20110406
  4. DOCETAXEL [Suspect]
     Dosage: VIA PORT
     Route: 041
     Dates: start: 20110406, end: 20110406
  5. CISPLATIN [Suspect]
     Dosage: VIA PORT
     Route: 041
     Dates: start: 20110406, end: 20110406
  6. DOCETAXEL [Suspect]
     Indication: METASTATIC GASTRIC CANCER
     Dosage: VIA PORT
     Route: 041
     Dates: start: 20101208, end: 20101208
  7. DOCETAXEL [Suspect]
     Dosage: VIA PORT
     Route: 041
     Dates: start: 20110406, end: 20110406
  8. CISPLATIN [Suspect]
     Indication: METASTATIC GASTRIC CANCER
     Dosage: VIA PORT
     Route: 041
     Dates: start: 20101208, end: 20101208

REACTIONS (2)
  - HYPOCALCAEMIA [None]
  - TETANY [None]
